FAERS Safety Report 9618408 (Version 2)
Quarter: 2013Q4

REPORT INFORMATION
  Report Type: Spontaneous
  Country: FR (occurrence: FR)
  Receive Date: 20131014
  Receipt Date: 20131108
  Transmission Date: 20140711
  Serious: Yes (Other)
  Sender: FDA-Public Use
  Company Number: FR-MERCK-1310FRA003510

PATIENT
  Age: 56 Year
  Sex: Male

DRUGS (5)
  1. TIENAM 500MG/500MG, POUDRE POUR PERFUSION [Suspect]
     Dosage: 500 MG, TID
     Route: 042
     Dates: start: 20130918, end: 20130924
  2. INEXIUM [Concomitant]
     Dosage: 20 MG, QD
     Route: 048
     Dates: start: 20130918
  3. SOLU-MEDROL [Concomitant]
     Dosage: 40 MG, QD
     Route: 042
     Dates: start: 20130918
  4. KARDEGIC [Concomitant]
     Indication: ISCHAEMIC CARDIOMYOPATHY
     Dosage: 75 MG, QD
     Route: 048
     Dates: start: 20130918
  5. AMLOR [Concomitant]
     Indication: HYPERTENSION
     Dosage: 20 MG, QD
     Route: 048

REACTIONS (3)
  - Cell death [Not Recovered/Not Resolved]
  - Cholestasis [Not Recovered/Not Resolved]
  - Transaminases increased [Not Recovered/Not Resolved]
